FAERS Safety Report 6421335-7 (Version None)
Quarter: 2009Q4

REPORT INFORMATION
  Report Type: 
  Country: None (occurrence: None)
  Receive Date: 20091029
  Receipt Date: 20091029
  Transmission Date: 20100525
  Serious: No
  Sender: FDA-Public Use
  Company Number: None

PATIENT
  Age: 88 Year
  Sex: Female

DRUGS (1)
  1. ZITHROMAX [Suspect]
     Dosage: 500 MG DAILY ORAL (PO)
     Route: 048
     Dates: start: 20091017, end: 20091020

REACTIONS (1)
  - RASH ERYTHEMATOUS [None]
